FAERS Safety Report 6722748-6 (Version None)
Quarter: 2010Q2

REPORT INFORMATION
  Report Type: 
  Country: None (occurrence: None)
  Receive Date: 20100511
  Receipt Date: 20100426
  Transmission Date: 20101027
  Serious: Yes (Disabling)
  Sender: FDA-Public Use
  Company Number: AUR-APL-2010-01178

PATIENT
  Age: 70 Year
  Sex: Female
  Weight: 65 kg

DRUGS (1)
  1. SIMVASTATIN [Suspect]
     Dosage: 40MG

REACTIONS (3)
  - DEFAECATION URGENCY [None]
  - FAECAL INCONTINENCE [None]
  - INTESTINAL FUNCTIONAL DISORDER [None]
